FAERS Safety Report 6123010-5 (Version None)
Quarter: 2009Q1

REPORT INFORMATION
  Report Type: 
  Country: None (occurrence: None)
  Receive Date: 20090318
  Receipt Date: 20090310
  Transmission Date: 20090719
  Serious: Yes (Disabling)
  Sender: FDA-Public Use
  Company Number: US-MERCK-0805USA00394

PATIENT
  Age: 53 Year
  Sex: Female

DRUGS (1)
  1. FOSAMAX [Suspect]
     Indication: OSTEOPOROSIS
     Route: 048
     Dates: start: 20041004, end: 20060301

REACTIONS (4)
  - BLOOD CHOLESTEROL INCREASED [None]
  - JAW DISORDER [None]
  - MELANOCYTIC NAEVUS [None]
  - OSTEONECROSIS [None]
